FAERS Safety Report 9239547 (Version 3)
Quarter: 2013Q3

REPORT INFORMATION
  Report Type: Spontaneous
  Country: IT (occurrence: IT)
  Receive Date: 20130418
  Receipt Date: 20130912
  Transmission Date: 20140515
  Serious: Yes (Hospitalization)
  Sender: FDA-Public Use
  Company Number: IT-ASTRAZENECA-2013SE24677

PATIENT
  Age: 3433 Week
  Sex: Male

DRUGS (2)
  1. ATENOLOL [Suspect]
     Route: 048
     Dates: start: 20121219, end: 20121219
  2. NORVASC [Suspect]
     Route: 065

REACTIONS (4)
  - Hyperhidrosis [Unknown]
  - Presyncope [Unknown]
  - Blood pressure decreased [Unknown]
  - Drug administration error [Recovered/Resolved]
